FAERS Safety Report 13700277 (Version 3)
Quarter: 2017Q3

REPORT INFORMATION
  Report Type: Spontaneous
  Country: US (occurrence: US)
  Receive Date: 20170629
  Receipt Date: 20170809
  Transmission Date: 20171127
  Serious: Yes (Other)
  Sender: FDA-Public Use
  Company Number: US-TEVA-781076ACC

PATIENT
  Age: 22 Year
  Sex: Female
  Weight: 49.94 kg

DRUGS (2)
  1. SYNTHROID [Concomitant]
     Active Substance: LEVOTHYROXINE SODIUM
  2. PARAGARD T 380A [Suspect]
     Active Substance: COPPER
     Indication: CONTRACEPTION
     Dates: start: 20170426

REACTIONS (3)
  - Device dislocation [Not Recovered/Not Resolved]
  - Haemorrhage [Unknown]
  - Complication associated with device [Unknown]

NARRATIVE: CASE EVENT DATE: 20170518
